FAERS Safety Report 5711222-1 (Version None)
Quarter: 2008Q2

REPORT INFORMATION
  Report Type: 
  Country: None (occurrence: None)
  Receive Date: 20080421
  Receipt Date: 20080416
  Transmission Date: 20081010
  Serious: Yes (Hospitalization, Other)
  Sender: FDA-Public Use
  Company Number: US-ASTRAZENECA-2007UW21781

PATIENT
  Age: 77 Year
  Sex: Male
  Weight: 78.2 kg

DRUGS (5)
  1. CASODEX [Suspect]
     Indication: PROSTATE CANCER
     Route: 048
     Dates: start: 20060401
  2. HYDROCHLOROTHIAZIDE [Concomitant]
     Indication: HYPERTENSION
     Route: 048
     Dates: start: 20020515
  3. UROXATROL [Concomitant]
     Indication: POLLAKIURIA
     Route: 048
     Dates: start: 20060801
  4. CALCIUM + VITAMIN D [Concomitant]
  5. TOLTERODINE TARTRATE [Concomitant]
     Indication: POLLAKIURIA
     Route: 048
     Dates: start: 20070629

REACTIONS (7)
  - ANAEMIA [None]
  - CARDIAC NEOPLASM MALIGNANT [None]
  - CHEST PAIN [None]
  - DYSPNOEA [None]
  - INTRACARDIAC MASS [None]
  - INTRACARDIAC THROMBUS [None]
  - THROMBOSIS [None]
